FAERS Safety Report 8199714-X (Version None)
Quarter: 2012Q1

REPORT INFORMATION
  Report Type: 
  Country: None (occurrence: None)
  Receive Date: 20120311
  Receipt Date: 20120305
  Transmission Date: 20120608
  Serious: Yes (Hospitalization, Other)
  Sender: FDA-Public Use
  Company Number: PHHY2011US48227

PATIENT
  Sex: Female
  Weight: 54 kg

DRUGS (4)
  1. EXJADE [Suspect]
     Indication: IRON OVERLOAD
     Dosage: 1500 MG, QD
     Route: 048
     Dates: start: 20101216
  2. EXJADE [Suspect]
     Indication: THALASSAEMIA
     Dosage: 1500 MG, QD
     Route: 048
     Dates: start: 20060110
  3. EXJADE [Suspect]
     Dosage: 1500 MG, DAILY
     Route: 048
     Dates: start: 20101119, end: 20120119
  4. EXJADE [Suspect]
     Dosage: 500 MG, TID
     Route: 048

REACTIONS (10)
  - CYSTITIS [None]
  - CONSTIPATION [None]
  - IRRITABLE BOWEL SYNDROME [None]
  - VOMITING [None]
  - ABDOMINAL PAIN UPPER [None]
  - NAUSEA [None]
  - ABDOMINAL DISTENSION [None]
  - ABDOMINAL DISCOMFORT [None]
  - DIARRHOEA [None]
  - URINARY TRACT INFECTION [None]
